FAERS Safety Report 25528307 (Version 1)
Quarter: 2025Q3

REPORT INFORMATION
  Report Type: Spontaneous
  Country: RU (occurrence: RU)
  Receive Date: 20250708
  Receipt Date: 20250708
  Transmission Date: 20251021
  Serious: Yes (Other)
  Sender: ABBVIE
  Company Number: RU-ABBVIE-6357558

PATIENT
  Age: 16 Year
  Sex: Female
  Weight: 65 kg

DRUGS (4)
  1. RINVOQ [Suspect]
     Active Substance: UPADACITINIB
     Indication: Crohn^s disease
     Dosage: 15 MILLIGRAM
     Route: 048
     Dates: start: 20250610, end: 20250610
  2. LOSARTAN [Concomitant]
     Active Substance: LOSARTAN
     Indication: Hypertension
     Route: 048
     Dates: start: 202503
  3. PENTASA [Concomitant]
     Active Substance: MESALAMINE
     Indication: Crohn^s disease
     Route: 048
  4. Salofalk [Concomitant]
     Indication: Crohn^s disease
     Route: 054

REACTIONS (3)
  - Drug eruption [Recovered/Resolved]
  - Ecchymosis [Recovered/Resolved]
  - Pruritus [Recovered/Resolved]

NARRATIVE: CASE EVENT DATE: 20250610
